FAERS Safety Report 7884392-7 (Version None)
Quarter: 2011Q4

REPORT INFORMATION
  Report Type: 
  Country: None (occurrence: None)
  Receive Date: 20111102
  Receipt Date: 20111019
  Transmission Date: 20120403
  Serious: Yes (Other)
  Sender: FDA-Public Use
  Company Number: CA-JNJFOC-20111010736

PATIENT
  Sex: Female
  Weight: 58.97 kg

DRUGS (8)
  1. VITAMIN D [Concomitant]
  2. OTHER THERAPEUTIC MEDICATION [Concomitant]
  3. HUMIRA [Concomitant]
  4. CALCIUM [Concomitant]
  5. CORTISONE ACETATE [Concomitant]
  6. EFFEXOR [Concomitant]
  7. REMICADE [Suspect]
     Indication: COLITIS ULCERATIVE
     Route: 042
  8. PANTOPRAZOLE SODIUM [Concomitant]

REACTIONS (4)
  - HEART RATE INCREASED [None]
  - PRURITUS GENERALISED [None]
  - INFUSION RELATED REACTION [None]
  - RESPIRATORY DISORDER [None]
